FAERS Safety Report 9009651 (Version 3)
Quarter: 2013Q2

REPORT INFORMATION
  Report Type: Report from Study
  Country: BR (occurrence: BR)
  Receive Date: 20130110
  Receipt Date: 20130506
  Transmission Date: 20140414
  Serious: Yes (Other)
  Sender: FDA-Public Use
  Company Number: BR-ROCHE-1143057

PATIENT
  Sex: Male
  Weight: 83 kg

DRUGS (7)
  1. ACTEMRA [Suspect]
     Indication: RHEUMATOID ARTHRITIS
     Route: 042
     Dates: start: 20120124, end: 20120915
  2. OMEPRAZOLE [Concomitant]
  3. AVODART [Concomitant]
  4. PROTOS [Concomitant]
  5. FORTEO [Concomitant]
  6. CORTISONE [Concomitant]
     Indication: RHEUMATOID ARTHRITIS
  7. UNKNOWN DRUG [Concomitant]

REACTIONS (6)
  - Hip fracture [Recovered/Resolved]
  - Spinal fracture [Recovered/Resolved]
  - Renal disorder [Unknown]
  - Pericardial disease [Unknown]
  - Arrhythmia [Unknown]
  - Oedema [Recovering/Resolving]
